FAERS Safety Report 12866821 (Version 1)
Quarter: 2016Q4

REPORT INFORMATION
  Report Type: Spontaneous
  Country: US (occurrence: US)
  Receive Date: 20161020
  Receipt Date: 20161020
  Transmission Date: 20170207
  Serious: No
  Sender: FDA-Public Use
  Company Number: US-ACTELION-A-US2016-143813

PATIENT
  Age: 63 Year
  Sex: Female

DRUGS (12)
  1. SEROQUEL [Concomitant]
     Active Substance: QUETIAPINE FUMARATE
  2. METOLAZONE. [Concomitant]
     Active Substance: METOLAZONE
  3. METFORMIN [Concomitant]
     Active Substance: METFORMIN HYDROCHLORIDE
  4. DILTIAZEM CD [Concomitant]
     Active Substance: DILTIAZEM
  5. LOVASTATIN. [Concomitant]
     Active Substance: LOVASTATIN
  6. TRACLEER [Suspect]
     Active Substance: BOSENTAN
     Indication: PULMONARY ARTERIAL HYPERTENSION
     Dosage: 125 MG, UNK
     Route: 048
     Dates: start: 20120716
  7. MELOXICAM. [Concomitant]
     Active Substance: MELOXICAM
  8. LASIX [Concomitant]
     Active Substance: FUROSEMIDE
  9. SPIRIVA [Concomitant]
     Active Substance: TIOTROPIUM BROMIDE MONOHYDRATE
  10. DUONEB [Concomitant]
     Active Substance: ALBUTEROL SULFATE\IPRATROPIUM BROMIDE
  11. SPIRONOLACTONE. [Concomitant]
     Active Substance: SPIRONOLACTONE
  12. ULTRAM [Concomitant]
     Active Substance: TRAMADOL HYDROCHLORIDE

REACTIONS (4)
  - Ear discomfort [Unknown]
  - Dizziness [Unknown]
  - Ear infection [Not Recovered/Not Resolved]
  - Dizziness postural [Unknown]

NARRATIVE: CASE EVENT DATE: 20161004
